FAERS Safety Report 5897189-4 (Version None)
Quarter: 2008Q3

REPORT INFORMATION
  Report Type: 
  Country: None (occurrence: None)
  Receive Date: 20080923
  Receipt Date: 20080908
  Transmission Date: 20090109
  Serious: Yes (Death, Hospitalization, Other)
  Sender: FDA-Public Use
  Company Number: DSU-2008-01420

PATIENT
  Age: 75 Year
  Sex: Female

DRUGS (15)
  1. BENICAR HCT [Suspect]
     Indication: DRUG USE FOR UNKNOWN INDICATION
     Dosage: 40/12.5 (QD), PER ORAL
     Route: 048
     Dates: start: 20080312
  2. INTERMUNE STUDY DRUG OR PLACEBO [Suspect]
     Indication: IDIOPATHIC PULMONARY FIBROSIS
     Dosage: 6 CAPSULES (3 CAPSULES TID)
     Dates: start: 20061110
  3. REGLAN(METOCLOPRAMIDE) (METOCLOPRAMIDE) [Concomitant]
  4. GUAIFENESIN/CODEINE(CODEINE PHOSPHATE, GUAIFENESIN)(CODEINE PHOSPHATE, [Concomitant]
  5. BABY ASPIRIN (ACETYLSALICYLIC ACID) (ACETYLSALICYLIC ACID) [Concomitant]
  6. TEKTURNA [Concomitant]
  7. FELDENE (PIROXICAM) ( PIROXICAM) [Concomitant]
  8. OMEPRAZOLE [Concomitant]
  9. CRESTOR [Concomitant]
  10. AMBIEN [Concomitant]
  11. ACTONEL (RISEDRONATE SODIUM)(RISEDRONATE SODIUM) [Concomitant]
  12. TESSALON PERLE (BENZONATATE)(CAPSULE)(BENZONATATE) [Concomitant]
  13. XANAX (ALPRAZOLAM)(ALPRAZOLAM) [Concomitant]
  14. DUO-NEB (SALBUTAMOL, IPRATROPIUM BROMIDE)(SALBUTAMOL, IPRATROPIUM BROM [Concomitant]
  15. LIDODERM (LIDOCAINE) (LIDOCAINE) [Concomitant]

REACTIONS (34)
  - ANAEMIA [None]
  - ANOREXIA [None]
  - ANXIETY [None]
  - BLOOD CHLORIDE DECREASED [None]
  - BLOOD CREATINE PHOSPHOKINASE MB INCREASED [None]
  - BLOOD GLUCOSE INCREASED [None]
  - CARDIAC FAILURE [None]
  - CARDIAC FAILURE HIGH OUTPUT [None]
  - COMPUTERISED TOMOGRAM ABNORMAL [None]
  - DEATH OF RELATIVE [None]
  - DEPRESSION [None]
  - DIASTOLIC DYSFUNCTION [None]
  - DRUG INTOLERANCE [None]
  - HYPERTENSION [None]
  - HYPOKALAEMIA [None]
  - HYPONATRAEMIA [None]
  - IDIOPATHIC PULMONARY FIBROSIS [None]
  - INTERSTITIAL LUNG DISEASE [None]
  - LEFT VENTRICULAR HYPERTROPHY [None]
  - LUNG CONSOLIDATION [None]
  - MITRAL VALVE INCOMPETENCE [None]
  - PLATELET COUNT INCREASED [None]
  - PLEURAL EFFUSION [None]
  - PNEUMONIA [None]
  - PULMONARY ARTERY DILATATION [None]
  - PULMONARY FIBROSIS [None]
  - PULMONARY HYPERTENSION [None]
  - PULMONARY OEDEMA [None]
  - REFUSAL OF TREATMENT BY RELATIVE [None]
  - RESPIRATORY FAILURE [None]
  - SINUSITIS [None]
  - TRICUSPID VALVE INCOMPETENCE [None]
  - TROPONIN I INCREASED [None]
  - VIRAL UPPER RESPIRATORY TRACT INFECTION [None]
